FAERS Safety Report 18619765 (Version 2)
Quarter: 2020Q4

REPORT INFORMATION
  Report Type: Spontaneous
  Country: US (occurrence: US)
  Receive Date: 20201215
  Receipt Date: 20201221
  Transmission Date: 20210114
  Serious: No
  Sender: FDA-Public Use
  Company Number: US-PFIZER INC-2020491984

PATIENT
  Age: 63 Year
  Sex: Female

DRUGS (1)
  1. XELJANZ [Suspect]
     Active Substance: TOFACITINIB CITRATE
     Indication: RHEUMATOID ARTHRITIS
     Dosage: 5 MG, DAILY(AFTER A MEAL)
     Route: 048
     Dates: start: 2018

REACTIONS (2)
  - Allergic respiratory disease [Unknown]
  - Oropharyngeal pain [Unknown]
